FAERS Safety Report 8953279 (Version 3)
Quarter: 2013Q2

REPORT INFORMATION
  Report Type: Spontaneous
  Country: BR (occurrence: BR)
  Receive Date: 20121206
  Receipt Date: 20130605
  Transmission Date: 20140414
  Serious: Yes (Hospitalization, Other)
  Sender: FDA-Public Use
  Company Number: BR-AMGEN-BRASP2012077956

PATIENT
  Age: 39 Year
  Sex: Female
  Weight: 85 kg

DRUGS (4)
  1. ENBREL [Suspect]
     Indication: PSORIATIC ARTHROPATHY
     Dosage: 50 MG, QWK
     Dates: start: 2012, end: 201303
  2. ENBREL [Suspect]
     Dosage: UNK
  3. FOLIC ACID [Concomitant]
     Dosage: UNK
  4. METHOTREXATE [Concomitant]
     Dosage: MONDAYS: 2 CAPSULES IN THE MORNING, 2 CAPULES IN THE AFTERNOON; ON THE FOLLOWING DAY, 2 MORE CAPSULE

REACTIONS (21)
  - Diabetes mellitus [Unknown]
  - Blood cholesterol abnormal [Unknown]
  - Immune system disorder [Unknown]
  - Arthralgia [Unknown]
  - Pain in extremity [Unknown]
  - Bone pain [Unknown]
  - Swelling [Unknown]
  - Oedema peripheral [Unknown]
  - Limb discomfort [Unknown]
  - Hand deformity [Unknown]
  - Finger deformity [Not Recovered/Not Resolved]
  - Urinary tract infection [Not Recovered/Not Resolved]
  - Nasopharyngitis [Unknown]
  - Viral infection [Unknown]
  - Weight loss poor [Recovered/Resolved]
  - Weight increased [Recovered/Resolved]
  - Nephrolithiasis [Unknown]
  - Alopecia [Not Recovered/Not Resolved]
  - Seborrhoea [Unknown]
  - Drug effect incomplete [Recovering/Resolving]
  - Influenza [Recovering/Resolving]
